FAERS Safety Report 4768762-1 (Version None)
Quarter: 2005Q3

REPORT INFORMATION
  Report Type: 
  Country: None (occurrence: None)
  Receive Date: 20050914
  Receipt Date: 20050831
  Transmission Date: 20060218
  Serious: Yes (Other)
  Sender: FDA-Public Use
  Company Number: US-JNJFOC-20050902472

PATIENT

DRUGS (1)
  1. RAZADYNE [Suspect]
     Indication: DRUG USE FOR UNKNOWN INDICATION
     Route: 048

REACTIONS (3)
  - DRUG PRESCRIBING ERROR [None]
  - NO ADVERSE DRUG EFFECT [None]
  - WRONG TECHNIQUE IN DRUG USAGE PROCESS [None]
